FAERS Safety Report 15525443 (Version 3)
Quarter: 2018Q4

REPORT INFORMATION
  Report Type: Spontaneous
  Country: JP (occurrence: JP)
  Receive Date: 20181018
  Receipt Date: 20181219
  Transmission Date: 20190205
  Serious: Yes (Other)
  Sender: FDA-Public Use
  Company Number: JP-ASTRAZENECA-2018SF27903

PATIENT
  Age: 25618 Day
  Sex: Male
  Weight: 54 kg

DRUGS (6)
  1. GLACTIV [Concomitant]
     Active Substance: SITAGLIPTIN
     Indication: DIABETES MELLITUS
     Route: 048
  2. METHYCOBAL [Concomitant]
     Active Substance: METHYLCOBALAMIN
     Indication: VOCAL CORD PARESIS
     Dosage: DOSE UNKNOWN
     Route: 065
     Dates: start: 20180518
  3. RADIOTHERAPY [Suspect]
     Active Substance: RADIATION THERAPY
     Dosage: TOTAL DOSE AT 60GY IN 30 FRACTION
     Route: 065
     Dates: start: 20180720, end: 20180801
  4. IMFINZI [Suspect]
     Active Substance: DURVALUMAB
     Indication: NON-SMALL CELL LUNG CANCER
     Route: 042
     Dates: start: 20180911, end: 20180925
  5. ALLOID G [Concomitant]
     Active Substance: SODIUM ALGINATE
     Indication: ODYNOPHAGIA
     Dosage: DOSE UNKNOWN
     Route: 065
     Dates: start: 20180709
  6. MUCOSOLVAN L [Concomitant]
     Active Substance: AMBROXOL HYDROCHLORIDE

REACTIONS (2)
  - Radiation pneumonitis [Recovering/Resolving]
  - Pleural effusion [Unknown]

NARRATIVE: CASE EVENT DATE: 20180925
